FAERS Safety Report 22688472 (Version 3)
Quarter: 2024Q1

REPORT INFORMATION
  Report Type: Spontaneous
  Country: US (occurrence: US)
  Receive Date: 20230710
  Receipt Date: 20240305
  Transmission Date: 20240410
  Serious: No
  Sender: FDA-Public Use
  Company Number: US-SA-SAC20230710000101

PATIENT
  Sex: Female

DRUGS (1)
  1. DUPIXENT [Suspect]
     Active Substance: DUPILUMAB
     Indication: Asthma
     Dosage: 300 MG, QOW
     Route: 058
     Dates: start: 20220802

REACTIONS (6)
  - Impaired quality of life [Unknown]
  - Insomnia [Unknown]
  - Injection site erythema [Unknown]
  - Asthma [Unknown]
  - Eye irritation [Unknown]
  - Therapeutic product effect decreased [Unknown]
